FAERS Safety Report 12569635 (Version 1)
Quarter: 2016Q3

REPORT INFORMATION
  Report Type: Spontaneous
  Country: US (occurrence: None)
  Receive Date: 20160718
  Receipt Date: 20160718
  Transmission Date: 20161109
  Serious: Yes (Hospitalization)
  Sender: FDA-Public Use
  Company Number: None

PATIENT
  Age: 60 Year
  Sex: Female
  Weight: 71.53 kg

DRUGS (8)
  1. SYNTHROID [Concomitant]
     Active Substance: LEVOTHYROXINE SODIUM
  2. XANEX [Concomitant]
  3. MVI [Concomitant]
     Active Substance: VITAMINS
  4. MSO4 [Concomitant]
     Active Substance: MORPHINE SULFATE
  5. INTERFERON GAMMA NOS [Suspect]
     Active Substance: INTERFERON GAMMA
     Indication: METASTATIC UTERINE CANCER
     Dosage: 130MCG QOD X 14 DOSES SQ??6/21 TO PRESENT
     Route: 058
  6. MICARDIS [Concomitant]
     Active Substance: TELMISARTAN
  7. ADVIL [Concomitant]
     Active Substance: IBUPROFEN
  8. NIVOLUMAB [Suspect]
     Active Substance: NIVOLUMAB
     Indication: METASTATIC UTERINE CANCER
     Dosage: 6/68
     Route: 042

REACTIONS (2)
  - Post procedural complication [None]
  - Pleural effusion [None]

NARRATIVE: CASE EVENT DATE: 20160713
